FAERS Safety Report 4765887-1 (Version None)
Quarter: 2005Q3

REPORT INFORMATION
  Report Type: 
  Country: None (occurrence: None)
  Receive Date: 20050906
  Receipt Date: 20050822
  Transmission Date: 20060218
  Serious: Yes (Hospitalization, Other)
  Sender: FDA-Public Use
  Company Number: HQWYE052022AUG05

PATIENT
  Age: 55 Year
  Sex: Male

DRUGS (6)
  1. ADVIL [Suspect]
     Dosage: 600 MG 1X PER 1 DAY ORAL
     Route: 048
     Dates: start: 20050704, end: 20050705
  2. ACETAMINOPHEN [Concomitant]
  3. MUCOMYST [Concomitant]
  4. MOTILIUM [Concomitant]
  5. AUGMENTIN '125' [Concomitant]
  6. RHINOFLUIMUCIL (ACETYLCYSTEINE/BENZALKONIUM CHLORIDE/TUAMINOHEPTANE) [Concomitant]

REACTIONS (9)
  - ARRHYTHMIA [None]
  - ATRIAL FIBRILLATION [None]
  - CHOLESTASIS [None]
  - CONDITION AGGRAVATED [None]
  - HEPATIC STEATOSIS [None]
  - RENAL FAILURE [None]
  - SEPSIS [None]
  - SPINAL MYELOGRAM ABNORMAL [None]
  - THROMBOCYTOPENIA [None]
